FAERS Safety Report 12424786 (Version 1)
Quarter: 2016Q2

REPORT INFORMATION
  Report Type: Spontaneous
  Country: US (occurrence: None)
  Receive Date: 20160531
  Receipt Date: 20160531
  Transmission Date: 20160815
  Serious: No
  Sender: FDA-Public Use
  Company Number: None

PATIENT
  Age: 73 Year
  Sex: Male

DRUGS (11)
  1. SANDOSTATIN LAR DEPOT [Concomitant]
     Active Substance: OCTREOTIDE ACETATE
  2. CABERGOLINE. [Concomitant]
     Active Substance: CABERGOLINE
  3. CALCIUM D [Concomitant]
     Active Substance: CALCIUM\VITAMIN D
  4. MULTIVITAMIN [Concomitant]
     Active Substance: VITAMINS
  5. A-HYDROCORT [Concomitant]
     Active Substance: HYDROCORTISONE SODIUM SUCCINATE
  6. SOMAVERT [Suspect]
     Active Substance: PEGVISOMANT
     Indication: ACROMEGALY
     Dosage: 20 MG TIW (M,W,F) SQ
     Route: 058
     Dates: start: 201507
  7. FORTEO [Concomitant]
     Active Substance: TERIPARATIDE
  8. LATANOPROST. [Concomitant]
     Active Substance: LATANOPROST
  9. PEPCID [Concomitant]
     Active Substance: FAMOTIDINE
  10. VITAMIN D [Concomitant]
     Active Substance: CHOLECALCIFEROL
  11. SOMAVERT [Suspect]
     Active Substance: PEGVISOMANT
     Indication: GIGANTISM
     Dosage: 20 MG TIW (M,W,F) SQ
     Route: 058
     Dates: start: 201507

REACTIONS (1)
  - Abnormal faeces [None]

NARRATIVE: CASE EVENT DATE: 201507
